FAERS Safety Report 10430207 (Version 1)
Quarter: 2014Q3

REPORT INFORMATION
  Report Type: Spontaneous
  Country: ES (occurrence: None)
  Receive Date: 20140902
  Receipt Date: 20140902
  Transmission Date: 20150326
  Serious: Yes (Hospitalization, Other)
  Sender: FDA-Public Use
  Company Number: 2014AP004269

PATIENT
  Age: 84 Year
  Sex: Female

DRUGS (6)
  1. ENALAPRIL (ENALAPRIL) [Suspect]
     Active Substance: ENALAPRIL
     Indication: HYPERTENSION
     Route: 048
     Dates: start: 201202, end: 20130908
  2. AUGMENTINE [Suspect]
     Active Substance: AMOXICILLIN\CLAVULANATE POTASSIUM
     Indication: RESPIRATORY FAILURE
     Route: 048
     Dates: start: 20130829, end: 20130908
  3. SIMVASTATINA (SIMVASTATIN) [Concomitant]
  4. FUROSEMIDE (FUROSEMIDE) [Suspect]
     Active Substance: FUROSEMIDE
     Indication: PULMONARY HYPERTENSION
     Route: 048
     Dates: start: 2011
  5. IBUPROFEN (IBUPROFEN) [Suspect]
     Active Substance: IBUPROFEN
     Indication: PYREXIA
     Route: 048
     Dates: start: 20130829, end: 20130919
  6. ASPIRIN. [Concomitant]
     Active Substance: ASPIRIN

REACTIONS (4)
  - Cardiac failure [None]
  - Hyperkalaemia [None]
  - Renal failure acute [None]
  - Drug interaction [None]

NARRATIVE: CASE EVENT DATE: 20130901
